FAERS Safety Report 6312956-0 (Version None)
Quarter: 2009Q3

REPORT INFORMATION
  Report Type: 
  Country: None (occurrence: None)
  Receive Date: 20090818
  Receipt Date: 20090626
  Transmission Date: 20100115
  Serious: No
  Sender: FDA-Public Use
  Company Number: US-BAYER-200925014NA

PATIENT
  Sex: Female

DRUGS (2)
  1. CLIMARA [Suspect]
     Indication: HOT FLUSH
     Route: 062
     Dates: start: 19930101
  2. CLIMARA [Suspect]
     Dosage: CHANGES EVERY 6 DAYS
     Route: 062
     Dates: start: 19930101

REACTIONS (1)
  - APPLICATION SITE RASH [None]
